FAERS Safety Report 11046456 (Version 2)
Quarter: 2015Q2

REPORT INFORMATION
  Report Type: Report from Study
  Country: US (occurrence: US)
  Receive Date: 20150420
  Receipt Date: 20150424
  Transmission Date: 20150821
  Serious: Yes (Hospitalization)
  Sender: FDA-Public Use
  Company Number: US-ROCHE-1563618

PATIENT
  Age: 74 Year
  Sex: Female
  Weight: 76.73 kg

DRUGS (18)
  1. NAB-PACLITAXEL [Suspect]
     Active Substance: PACLITAXEL
     Indication: BREAST CANCER METASTATIC
     Dosage: WEEKLY TIMES 3 WITH 1 WEEK OFF
     Route: 042
  2. ATENOLOL. [Concomitant]
     Active Substance: ATENOLOL
     Route: 048
     Dates: start: 20150303
  3. SPIRONOLACTONE. [Concomitant]
     Active Substance: SPIRONOLACTONE
     Route: 048
     Dates: start: 20150331
  4. LINZESS [Concomitant]
     Active Substance: LINACLOTIDE
     Route: 048
     Dates: start: 20150331
  5. MAGNESIUM CHLORIDE. [Concomitant]
     Active Substance: MAGNESIUM CHLORIDE
     Route: 048
     Dates: start: 20150331
  6. REFRESH TEARS [Concomitant]
     Active Substance: CARBOXYMETHYLCELLULOSE SODIUM
     Dosage: 1 DROP
     Route: 065
     Dates: start: 20150331
  7. MIRALAX [Concomitant]
     Active Substance: POLYETHYLENE GLYCOL 3350
     Route: 048
     Dates: start: 20150331
  8. VITAMIN D2 [Concomitant]
     Active Substance: ERGOCALCIFEROL
     Route: 048
     Dates: start: 20150331
  9. CHLORHEXIDINE [Concomitant]
     Active Substance: CHLORHEXIDINE
     Route: 061
     Dates: start: 20150331
  10. GLUCOSAMINE CHONDROITIN COMPLEX [Concomitant]
     Active Substance: CHONDROITIN SULFATE (BOVINE)\GLUCOSAMINE HYDROCHLORIDE
     Route: 048
     Dates: start: 20150331
  11. TRASTUZUMAB [Suspect]
     Active Substance: TRASTUZUMAB
     Route: 042
  12. OMEPRAZOLE. [Concomitant]
     Active Substance: OMEPRAZOLE
     Route: 048
     Dates: start: 20150331
  13. BABY ASPIRIN [Concomitant]
     Active Substance: ASPIRIN
     Dosage: CHEW
     Route: 048
     Dates: start: 20150331
  14. ZOCOR [Concomitant]
     Active Substance: SIMVASTATIN
     Route: 048
     Dates: start: 20150331
  15. TYLENOL [Concomitant]
     Active Substance: ACETAMINOPHEN
     Route: 048
     Dates: start: 20150331
  16. MONURAL [Concomitant]
     Route: 065
     Dates: start: 20150331
  17. TRASTUZUMAB [Suspect]
     Active Substance: TRASTUZUMAB
     Indication: BREAST CANCER METASTATIC
     Dosage: 8MG/KG AS LOADING DOSE
     Route: 042
     Dates: start: 20150331
  18. NEXIUM [Concomitant]
     Active Substance: ESOMEPRAZOLE MAGNESIUM
     Route: 048
     Dates: start: 20150331

REACTIONS (1)
  - Febrile neutropenia [Recovered/Resolved]

NARRATIVE: CASE EVENT DATE: 20150407
